FAERS Safety Report 9698727 (Version 1)
Quarter: 2013Q4

REPORT INFORMATION
  Report Type: Spontaneous
  Country: FR (occurrence: FR)
  Receive Date: 20131120
  Receipt Date: 20131120
  Transmission Date: 20140711
  Serious: Yes (Death, Other)
  Sender: FDA-Public Use
  Company Number: FR-SPECTRUM PHARMACEUTICALS, INC.-13-F-FR-00294

PATIENT
  Sex: 0

DRUGS (6)
  1. FLUOROURACIL [Suspect]
     Indication: ANAL CANCER
     Dosage: 600 MG/M2, QD
     Route: 042
  2. FLUOROURACIL [Suspect]
     Dosage: 800 MG/M2, QD X WEEK 1 AND 5 DAILY DURING 3 DAYS
     Route: 042
  3. FLUOROURACIL [Suspect]
     Dosage: 80 MG/M2, QD X WEEK 1 AND 5 DAILY DURING 1 DAY
     Route: 042
  4. CISPLATIN [Suspect]
     Indication: ANAL CANCER
     Dosage: 800 MG/M2, QD
     Route: 042
  5. CETUXIMAB [Suspect]
     Indication: ANAL CANCER
     Dosage: 250 MG/M2, QD, WEEKLY DURING RT X 6 WEEKS
     Route: 042
  6. CETUXIMAB [Suspect]
     Dosage: 400 MG/M2, QD, LOADING DOSE 1 WEEK PRIOR TO RT
     Route: 042

REACTIONS (12)
  - Disease progression [Fatal]
  - Perineal fistula [Unknown]
  - Gastrointestinal toxicity [Unknown]
  - Necrosis [Unknown]
  - Pyrexia [Unknown]
  - Mucosal inflammation [Unknown]
  - Skin toxicity [Unknown]
  - Infection [Unknown]
  - Haematotoxicity [Unknown]
  - Abdominal pain [Unknown]
  - Back pain [Unknown]
  - Dermatitis acneiform [Unknown]
